FAERS Safety Report 7653916-7 (Version None)
Quarter: 2011Q3

REPORT INFORMATION
  Report Type: 
  Country: None (occurrence: None)
  Receive Date: 20110803
  Receipt Date: 20110722
  Transmission Date: 20111222
  Serious: Yes (Hospitalization)
  Sender: FDA-Public Use
  Company Number: US-ELI_LILLY_AND_COMPANY-US201107006923

PATIENT
  Sex: Female

DRUGS (4)
  1. LANTUS [Concomitant]
  2. HUMALOG [Suspect]
     Dosage: 10 U, TID
     Dates: start: 20100401
  3. LEVEMIR [Concomitant]
  4. HUMALOG [Suspect]
     Indication: DIABETES MELLITUS
     Dosage: 10 U, TID
     Dates: start: 20100401

REACTIONS (2)
  - HOSPITALISATION [None]
  - CONFUSIONAL STATE [None]
